FAERS Safety Report 7278617-9 (Version None)
Quarter: 2011Q1

REPORT INFORMATION
  Report Type: 
  Country: None (occurrence: None)
  Receive Date: 20110207
  Receipt Date: 20110203
  Transmission Date: 20110831
  Serious: Yes (Hospitalization)
  Sender: FDA-Public Use
  Company Number: BE-ABBOTT-10P-013-0688722-00

PATIENT
  Sex: Female

DRUGS (12)
  1. HUMIRA [Suspect]
     Indication: RHEUMATOID ARTHRITIS
     Dates: end: 20100920
  2. MEDROL [Concomitant]
     Indication: RHEUMATOID ARTHRITIS
     Dates: start: 20000614
  3. ARAVA [Concomitant]
     Indication: RHEUMATOID ARTHRITIS
     Dates: start: 20060901
  4. EUTHYROX [Concomitant]
     Indication: HYPOTHYROIDISM
     Dosage: 50 MCG DAILY
  5. PERINDOPRIL ARGININE [Concomitant]
     Indication: PRODUCT USED FOR UNKNOWN INDICATION
     Dates: end: 20100801
  6. HUMIRA [Suspect]
     Dates: start: 20100929
  7. OMEPRAZOLE [Concomitant]
     Indication: ABDOMINAL PAIN UPPER
     Dates: start: 19990301
  8. SIMVASTATIN [Concomitant]
     Indication: HYPERCHOLESTEROLAEMIA
     Dates: start: 20080301
  9. ESTREVA [Concomitant]
     Indication: MENOPAUSE
     Dates: start: 20030131
  10. D-CURE [Concomitant]
     Indication: VITAMIN D DECREASED
     Dates: start: 19990101
  11. BIOFENAC [Concomitant]
     Indication: PRODUCT USED FOR UNKNOWN INDICATION
     Dates: end: 20100701
  12. DIURETICS [Concomitant]
     Indication: PRODUCT USED FOR UNKNOWN INDICATION
     Dates: end: 20100701

REACTIONS (4)
  - GAIT DISTURBANCE [None]
  - OEDEMA [None]
  - LYMPHOEDEMA [None]
  - RHEUMATOID ARTHRITIS [None]
